FAERS Safety Report 7078696-8 (Version None)
Quarter: 2010Q4

REPORT INFORMATION
  Report Type: 
  Country: None (occurrence: None)
  Receive Date: 20101101
  Receipt Date: 20101101
  Transmission Date: 20110411
  Serious: Yes (Disabling)
  Sender: FDA-Public Use
  Company Number: None

PATIENT
  Sex: Female
  Weight: 56.8 kg

DRUGS (1)
  1. MIRENA [Suspect]
     Indication: CONTRACEPTION
     Dates: start: 20080101

REACTIONS (7)
  - ASTHENIA [None]
  - BREAST CYST [None]
  - DROOLING [None]
  - HEADACHE [None]
  - LOSS OF CONSCIOUSNESS [None]
  - NAUSEA [None]
  - TREMOR [None]
